FAERS Safety Report 13973949 (Version 4)
Quarter: 2018Q3

REPORT INFORMATION
  Report Type: Spontaneous
  Country: BR (occurrence: BR)
  Receive Date: 20170915
  Receipt Date: 20180905
  Transmission Date: 20181010
  Serious: Yes (Other)
  Sender: FDA-Public Use
  Company Number: BR-PFIZER INC-2017394654

PATIENT
  Age: 58 Year
  Sex: Male

DRUGS (6)
  1. SOMALGIN CARDIO [Concomitant]
     Active Substance: ASPIRIN\DIHYDROXYALUMINUM AMINOACETATE ANHYDROUS\MAGNESIUM CARBONATE
     Dosage: UNK
  2. FRONTAL [Suspect]
     Active Substance: ALPRAZOLAM
     Dosage: 2 MG DAILY (2 TABLETS OF 1MG AT NIGHT)
  3. FRONTAL [Suspect]
     Active Substance: ALPRAZOLAM
     Indication: ALCOHOL ABUSE
     Dosage: 0.5 MG, UNK
     Dates: start: 2002
  4. FRONTAL [Suspect]
     Active Substance: ALPRAZOLAM
     Dosage: 2 MG, 1X/DAY
     Dates: start: 20180827, end: 20180827
  5. ATACAND [Concomitant]
     Active Substance: CANDESARTAN CILEXETIL
     Dosage: UNK
  6. FRONTAL [Suspect]
     Active Substance: ALPRAZOLAM
     Indication: SLEEP DISORDER
     Dosage: 1.0 MG, UNK

REACTIONS (4)
  - Drug ineffective for unapproved indication [Recovered/Resolved]
  - Head discomfort [Unknown]
  - Feeling abnormal [Unknown]
  - Glaucoma [Recovered/Resolved]

NARRATIVE: CASE EVENT DATE: 20180827
